FAERS Safety Report 6106464-X (Version None)
Quarter: 2009Q1

REPORT INFORMATION
  Report Type: 
  Country: None (occurrence: None)
  Receive Date: 20090302
  Receipt Date: 20090217
  Transmission Date: 20090719
  Serious: Yes (Hospitalization, Other)
  Sender: FDA-Public Use
  Company Number: 232869K08USA

PATIENT
  Age: 68 Year
  Sex: Female

DRUGS (2)
  1. REBIF [Suspect]
     Indication: MULTIPLE SCLEROSIS
     Dosage: SEE IMAGE
     Route: 058
     Dates: start: 20060131
  2. MULTI-VITAMINS [Concomitant]

REACTIONS (4)
  - BACTERIAL INFECTION [None]
  - GAIT DISTURBANCE [None]
  - RED BLOOD CELL SEDIMENTATION RATE INCREASED [None]
  - RENAL CANCER [None]
